FAERS Safety Report 7660031-5 (Version None)
Quarter: 2011Q3

REPORT INFORMATION
  Report Type: 
  Country: None (occurrence: None)
  Receive Date: 20110802
  Receipt Date: 20110722
  Transmission Date: 20111222
  Serious: Yes (Other)
  Sender: FDA-Public Use
  Company Number: 2011SP034856

PATIENT
  Age: 103 Year
  Sex: Female

DRUGS (1)
  1. DIPROSONE [Suspect]
     Indication: PRODUCT USED FOR UNKNOWN INDICATION
     Dates: start: 20110717, end: 20110717

REACTIONS (2)
  - BLINDNESS UNILATERAL [None]
  - ULCERATIVE KERATITIS [None]
